FAERS Safety Report 7501982-1 (Version None)
Quarter: 2011Q2

REPORT INFORMATION
  Report Type: 
  Country: None (occurrence: None)
  Receive Date: 20110523
  Receipt Date: 20110523
  Transmission Date: 20111010
  Serious: Yes (Life-Threatening, Hospitalization, Disabling, Other)
  Sender: FDA-Public Use
  Company Number: None

PATIENT
  Age: 47 Year
  Sex: Female

DRUGS (8)
  1. ALLERGY DN PE TABLETS [Suspect]
     Indication: RHINITIS ALLERGIC
     Dosage: 2XDAY 40-2.5MG 8-10-2.5 SCRIP QUANTITY 20 PILLS TABLETS BY MOUTH
     Route: 048
     Dates: start: 20091015
  2. ALLERGY DN PE TABLETS [Suspect]
     Indication: RHINITIS ALLERGIC
     Dosage: 2XDAY 40-2.5MG 8-10-2.5 SCRIP QUANTITY 20 PILLS TABLETS BY MOUTH
     Route: 048
     Dates: start: 20091215
  3. ALLERGY DN PE TABLETS [Suspect]
     Indication: RHINITIS ALLERGIC
     Dosage: 2XDAY 40-2.5MG 8-10-2.5 SCRIP QUANTITY 20 PILLS TABLETS BY MOUTH
     Route: 048
     Dates: start: 20091122
  4. ALLERGY DN PE TABLETS [Suspect]
     Indication: RHINITIS ALLERGIC
     Dosage: 2XDAY 40-2.5MG 8-10-2.5 SCRIP QUANTITY 20 PILLS TABLETS BY MOUTH
     Route: 048
     Dates: start: 20091130
  5. CARDIZEM [Concomitant]
  6. TOPAMAX [Concomitant]
  7. ALLERX 30 DOSE PACK [Suspect]
     Indication: RHINITIS ALLERGIC
     Dosage: 2XDAILY QUANTITY 60 ALLERX 10-8/120.2.5 DOS BY MOUTH
     Route: 048
     Dates: start: 20100319
  8. ALLERX 30 DOSE PACK [Suspect]
     Indication: RHINITIS ALLERGIC
     Dosage: 2XDAILY QUANTITY 60 ALLERX 10-8/120.2.5 DOS BY MOUTH
     Route: 048
     Dates: start: 20100219

REACTIONS (12)
  - DYSARTHRIA [None]
  - THINKING ABNORMAL [None]
  - PARAESTHESIA [None]
  - MEMORY IMPAIRMENT [None]
  - VISION BLURRED [None]
  - HEART RATE INCREASED [None]
  - ASTHENIA [None]
  - HEADACHE [None]
  - NECK PAIN [None]
  - HYPOAESTHESIA [None]
  - DEAFNESS [None]
  - HEMIPARESIS [None]
